FAERS Safety Report 7794697-6 (Version None)
Quarter: 2011Q4

REPORT INFORMATION
  Report Type: 
  Country: None (occurrence: None)
  Receive Date: 20111004
  Receipt Date: 20110922
  Transmission Date: 20120403
  Serious: Yes (Hospitalization)
  Sender: FDA-Public Use
  Company Number: US-SANOFI-AVENTIS-2011SA044471

PATIENT
  Sex: Male
  Weight: 100 kg

DRUGS (15)
  1. FUROSEMIDE [Concomitant]
     Dates: start: 20061128, end: 20101111
  2. POTASSIUM GLUCONATE TAB [Concomitant]
     Route: 048
     Dates: start: 20061128, end: 20101111
  3. XALATAN [Concomitant]
     Dates: start: 20060101
  4. ARICEPT [Concomitant]
     Indication: DEMENTIA
     Route: 048
     Dates: start: 20091020
  5. DRONEDARONE HCL [Suspect]
     Indication: ATRIAL FIBRILLATION
     Route: 048
     Dates: start: 20100811, end: 20101108
  6. METOPROLOL TARTRATE [Concomitant]
     Indication: CORONARY ARTERY DISEASE
     Route: 065
     Dates: start: 20061229
  7. ASPIRIN [Concomitant]
     Indication: CORONARY ARTERY DISEASE
     Route: 065
     Dates: start: 19920101
  8. ROSUVASTATIN [Concomitant]
     Route: 065
     Dates: start: 20050101
  9. VERAPAMIL [Concomitant]
     Route: 065
     Dates: start: 20100909
  10. DARVOCET-N 50 [Concomitant]
     Dosage: DOSE:1 UNIT(S)
     Dates: start: 20100909
  11. METOPROLOL TARTRATE [Concomitant]
     Indication: HYPERTENSION
     Route: 065
     Dates: start: 20061229
  12. ALDACTONE [Concomitant]
     Route: 065
     Dates: start: 20070227, end: 20101111
  13. WARFARIN SODIUM [Concomitant]
     Indication: ATRIAL FIBRILLATION
     Route: 065
     Dates: start: 20061024
  14. ALPHAGAN [Concomitant]
     Indication: GLAUCOMA
     Dates: start: 20060101
  15. CARDIZEM [Concomitant]
     Indication: ATRIAL FIBRILLATION
     Route: 048
     Dates: start: 20100909

REACTIONS (1)
  - CARDIAC FAILURE CONGESTIVE [None]
